FAERS Safety Report 11529222 (Version 1)
Quarter: 2015Q3

REPORT INFORMATION
  Report Type: Spontaneous
  Country: US (occurrence: None)
  Receive Date: 20150918
  Receipt Date: 20150918
  Transmission Date: 20151125
  Serious: No
  Sender: FDA-Public Use
  Company Number: None

PATIENT
  Age: 36 Year
  Sex: Female
  Weight: 71.67 kg

DRUGS (4)
  1. MULTI VITAMINS [Concomitant]
  2. PHENYLEPHRINE [Suspect]
     Active Substance: PHENYLEPHRINE\PHENYLEPHRINE HYDROCHLORIDE
     Indication: OPHTHALMOLOGICAL EXAMINATION
     Dates: start: 20150917, end: 20150917
  3. SERTRALINE [Concomitant]
     Active Substance: SERTRALINE HYDROCHLORIDE
  4. ULTA FLORA PROBIOTICS [Concomitant]

REACTIONS (7)
  - Fatigue [None]
  - Feeling abnormal [None]
  - Cold sweat [None]
  - Dizziness [None]
  - Vomiting [None]
  - Palpitations [None]
  - Nervousness [None]

NARRATIVE: CASE EVENT DATE: 20150917
